FAERS Safety Report 10661479 (Version 1)
Quarter: 2014Q4

REPORT INFORMATION
  Report Type: Spontaneous
  Country: IN (occurrence: None)
  Receive Date: 20141216
  Receipt Date: 20141216
  Transmission Date: 20150529
  Serious: Yes (Other)
  Sender: FDA-Public Use
  Company Number: 2014HINLIT1051

PATIENT
  Age: 45 Year
  Sex: Male

DRUGS (9)
  1. LAMIVUDINE+STAVUDINE+EFAVIRENZ (LAMIVUDINE+STAVUDINE+EFAVIRENZ) [Suspect]
     Active Substance: EFAVIRENZ\LAMIVUDINE\STAVUDINE
     Indication: HIV INFECTION
     Dates: start: 200404
  2. DOTS (DOTS) [Concomitant]
  3. LAMIVUDINE+STAVUDINE+NEVIRAPINE(LAMIVUDINE, STAVUDINE, NEVIRAPINE) UNKNOWN [Suspect]
     Active Substance: LAMIVUDINE\NEVIRAPINE\STAVUDINE
     Indication: HIV INFECTION
     Dates: start: 200403
  4. AZT/3TC/SQV/R. (ZIDOVUDINE, LAMIVUDINE, SAQUINAVIR, RITONAVIR) [Suspect]
     Active Substance: LAMIVUDINE\RITONAVIR\SAQUINAVIR\ZIDOVUDINE
     Indication: HIV INFECTION
     Dates: end: 2005
  5. COTRIMOXAZOLE [Concomitant]
     Active Substance: SULFAMETHOXAZOLE\TRIMETHOPRIM
  6. ABACAVIR/TENOFOVIR/LOPINAVIR WITH RITONAVIR BOOST(ABACAVIR/TENOFOVIR/LOPINAVIR WITH RITONAVIR BOOST) [Suspect]
     Active Substance: ABACAVIR\LOPINAVIR\RITONAVIR\TENOFOVIR
     Indication: HIV INFECTION
     Dates: start: 200708
  7. DARUNAVIR+RITONAVIR BOOST/RALTEGRAVIR/TENOFOVIR/ LAMIVUDINE(DARUNAVIR+RITONAVIR BOOST/RALTEGRAVIR/TENOFOVIR/LAMIVUDINE ) [Suspect]
     Active Substance: DARUNAVIR\LAMIVUDINE\RALTEGRAVIR\RITONAVIR\TENOFOVIR
     Indication: HIV INFECTION
     Dates: start: 201112
  8. AZT/3TC/TDF/LPV/R(ZIDOVUDINE/LAMIVUDINE/TENOFOVIR/LOPINAVIR WITH RITONAVIR BOOST) [Suspect]
     Indication: HIV INFECTION
     Dates: start: 2009
  9. LAMIVUDINE+ZIDOVUDINE+NEVIRAPINE [Suspect]
     Active Substance: LAMIVUDINE\NEVIRAPINE\ZIDOVUDINE
     Indication: HIV INFECTION
     Dosage: ONCE DAILY INSTEAD  OF TWICE DAILY
     Dates: start: 200204

REACTIONS (9)
  - Angina pectoris [None]
  - Mitral valve incompetence [None]
  - Tuberculosis [None]
  - Gastritis [None]
  - Cardiomyopathy [None]
  - Immune system disorder [None]
  - Viral load increased [None]
  - Pulmonary tuberculosis [None]
  - Treatment failure [None]
